FAERS Safety Report 17272722 (Version 5)
Quarter: 2023Q4

REPORT INFORMATION
  Report Type: Report from Study
  Country: US (occurrence: US)
  Receive Date: 20200115
  Receipt Date: 20231006
  Transmission Date: 20240110
  Serious: No
  Sender: FDA-Public Use
  Company Number: US-PFIZER INC-2020019176

PATIENT
  Sex: Female
  Weight: 85.714 kg

DRUGS (2)
  1. LYRICA [Suspect]
     Active Substance: PREGABALIN
     Indication: Fibromyalgia
     Dosage: UNK
     Route: 065
  2. LYRICA [Suspect]
     Active Substance: PREGABALIN
     Indication: Complex regional pain syndrome
     Dosage: 200 MILLIGRAM, BID
     Route: 048

REACTIONS (4)
  - Ear pain [Unknown]
  - Complex regional pain syndrome [Unknown]
  - Condition aggravated [Unknown]
  - Pain [Unknown]
